FAERS Safety Report 18548996 (Version 3)
Quarter: 2021Q1

REPORT INFORMATION
  Report Type: Report from Study
  Country: None (occurrence: US)
  Receive Date: 20201126
  Receipt Date: 20210329
  Transmission Date: 20210419
  Serious: Yes (Hospitalization, Other)
  Sender: FDA-Public Use
  Company Number: US-ABBVIE-20K-163-3324562-00

PATIENT
  Age: 45 Year
  Sex: Female
  Weight: 124.85 kg

DRUGS (2)
  1. HUMIRA [Suspect]
     Active Substance: ADALIMUMAB
     Route: 058
     Dates: start: 202103
  2. HUMIRA [Suspect]
     Active Substance: ADALIMUMAB
     Indication: HIDRADENITIS
     Route: 058
     Dates: start: 201908, end: 202010

REACTIONS (21)
  - Blood blister [Not Recovered/Not Resolved]
  - Abdominal operation [Unknown]
  - Incision site erythema [Unknown]
  - Post procedural complication [Unknown]
  - Joint noise [Not Recovered/Not Resolved]
  - Cardiac failure [Not Recovered/Not Resolved]
  - Joint injury [Unknown]
  - Joint swelling [Not Recovered/Not Resolved]
  - Fall [Recovered/Resolved]
  - Fluid retention [Not Recovered/Not Resolved]
  - Atrial fibrillation [Not Recovered/Not Resolved]
  - Malaise [Unknown]
  - Postoperative adhesion [Unknown]
  - Illness [Unknown]
  - Dyspnoea [Unknown]
  - Cardiac disorder [Unknown]
  - Ligament rupture [Not Recovered/Not Resolved]
  - Fatigue [Unknown]
  - Fall [Unknown]
  - Hidradenitis [Not Recovered/Not Resolved]
  - Arthralgia [Not Recovered/Not Resolved]

NARRATIVE: CASE EVENT DATE: 20200320
